FAERS Safety Report 13319800 (Version 4)
Quarter: 2017Q1

REPORT INFORMATION
  Report Type: Spontaneous
  Country: FR (occurrence: FR)
  Receive Date: 20170310
  Receipt Date: 20170323
  Transmission Date: 20170428
  Serious: No
  Sender: FDA-Public Use
  Company Number: FR-JNJFOC-20170306813

PATIENT
  Sex: Male

DRUGS (1)
  1. DUROGESIC [Suspect]
     Active Substance: FENTANYL
     Indication: PRODUCT USED FOR UNKNOWN INDICATION
     Route: 065
     Dates: start: 20170301, end: 20170302

REACTIONS (13)
  - Dysgraphia [Recovering/Resolving]
  - Intentional product misuse [Unknown]
  - Nausea [Unknown]
  - Reading disorder [Recovering/Resolving]
  - Erythema [Recovering/Resolving]
  - Apathy [Recovering/Resolving]
  - Hypotonia [Recovering/Resolving]
  - Feeling abnormal [Recovering/Resolving]
  - Gait disturbance [Unknown]
  - Vomiting [Recovering/Resolving]
  - Drug abuse [Unknown]
  - Malaise [Recovering/Resolving]
  - Miosis [Unknown]

NARRATIVE: CASE EVENT DATE: 201703
